FAERS Safety Report 11337921 (Version 1)
Quarter: 2015Q3

REPORT INFORMATION
  Report Type: Spontaneous
  Country: US (occurrence: US)
  Receive Date: 20150803
  Receipt Date: 20150803
  Transmission Date: 20151125
  Serious: Yes (Hospitalization, Disabling, Other)
  Sender: FDA-Public Use
  Company Number: US-ELI_LILLY_AND_COMPANY-US200701001954

PATIENT
  Sex: Female
  Weight: 132.43 kg

DRUGS (3)
  1. NICOTINE. [Concomitant]
     Active Substance: NICOTINE
  2. ZYPREXA [Suspect]
     Active Substance: OLANZAPINE
     Dosage: 1 D/F, UNK
     Dates: start: 1999, end: 2001
  3. ALCOHOL. [Concomitant]
     Active Substance: ALCOHOL

REACTIONS (10)
  - Urine odour abnormal [Not Recovered/Not Resolved]
  - Hyperlipidaemia [Recovering/Resolving]
  - Insulin resistance [Unknown]
  - Weight increased [Recovering/Resolving]
  - Diabetic ketoacidosis [Unknown]
  - Type 2 diabetes mellitus [Unknown]
  - Hypertension [Unknown]
  - Metabolic disorder [Unknown]
  - Obesity [Unknown]
  - Blood glucose increased [Not Recovered/Not Resolved]

NARRATIVE: CASE EVENT DATE: 2001
